FAERS Safety Report 9444239 (Version 1)
Quarter: 2013Q3

REPORT INFORMATION
  Report Type: Report from Study
  Country: BR (occurrence: BR)
  Receive Date: 20130807
  Receipt Date: 20130807
  Transmission Date: 20140515
  Serious: Yes (Hospitalization, Other)
  Sender: FDA-Public Use
  Company Number: PHHY2013BR083893

PATIENT
  Age: 66 Year
  Sex: Male

DRUGS (8)
  1. MYFORTIC [Suspect]
     Indication: RENAL TRANSPLANT
     Dosage: UNK UKN, UNK
  2. MYFORTIC [Suspect]
     Dosage: UNK UKN, UNK
  3. SIMULECT [Suspect]
     Indication: RENAL TRANSPLANT
     Dosage: UNK UKN, UNK
  4. PREDNISONE [Suspect]
     Indication: IMMUNOSUPPRESSION
     Dosage: UNK UKN, UNK
  5. TACROLIMUS [Suspect]
     Indication: IMMUNOSUPPRESSION
     Dosage: UNK UKN, UNK
  6. AZATHIOPRINE [Concomitant]
     Dosage: UNK UKN, UNK
  7. AZATHIOPRINE [Concomitant]
     Dosage: DOSE INCREASED
  8. SIROLIMUS [Concomitant]
     Dosage: UNK UKN, UNK

REACTIONS (8)
  - Gastric disorder [Unknown]
  - Nephropathy toxic [Unknown]
  - Renal impairment [Unknown]
  - Diarrhoea [Unknown]
  - Oedema [Unknown]
  - Dyspnoea [Unknown]
  - Vascular wall hypertrophy [Unknown]
  - Proteinuria [Unknown]
